FAERS Safety Report 21847389 (Version 1)
Quarter: 2023Q1

REPORT INFORMATION
  Report Type: Spontaneous
  Country: US (occurrence: US)
  Receive Date: 20230111
  Receipt Date: 20230111
  Transmission Date: 20230417
  Serious: No
  Sender: FDA-Public Use
  Company Number: US-SA-SAC20230110000544

PATIENT
  Sex: Female

DRUGS (3)
  1. DUPIXENT [Suspect]
     Active Substance: DUPILUMAB
     Indication: Asthma
     Dosage: 300 MG, QOW
     Route: 058
     Dates: start: 202203
  2. SOFOSBUVIR [Concomitant]
     Active Substance: SOFOSBUVIR
  3. VELPATASVIR [Concomitant]
     Active Substance: VELPATASVIR

REACTIONS (4)
  - Neuralgia [Unknown]
  - Headache [Unknown]
  - Heart rate increased [Unknown]
  - Insomnia [Unknown]
